FAERS Safety Report 8093572-X (Version None)
Quarter: 2012Q1

REPORT INFORMATION
  Report Type: 
  Country: None (occurrence: None)
  Receive Date: 20120129
  Receipt Date: 20111026
  Transmission Date: 20120608
  Serious: No
  Sender: FDA-Public Use
  Company Number: US-ABBOTT-11P-163-0868381-00

PATIENT
  Sex: Female

DRUGS (10)
  1. HUMIRA [Suspect]
  2. BYETTA [Concomitant]
     Indication: DIABETES MELLITUS
  3. LEVOXYL [Concomitant]
     Indication: HYPOTHYROIDISM
     Dosage: DAILY
  4. MULTI-VITAMINS [Concomitant]
     Indication: PRODUCT USED FOR UNKNOWN INDICATION
     Dosage: DAILY
  5. AMARYL [Concomitant]
     Indication: DIABETES MELLITUS
     Dosage: DAILY
  6. HUMIRA [Suspect]
     Indication: CROHN'S DISEASE
     Dosage: DAY ONE
     Route: 058
     Dates: start: 20111021, end: 20111021
  7. SILVADENE [Concomitant]
     Indication: SKIN ULCER
  8. REGLAN [Concomitant]
     Indication: ABDOMINAL PAIN UPPER
     Dosage: AS NEEDED
  9. FOLIC ACID [Concomitant]
     Indication: VITAMIN SUPPLEMENTATION
     Dosage: DAILY
  10. VITAMIN D [Concomitant]
     Indication: SUPPLEMENTATION THERAPY
     Dosage: DAILY

REACTIONS (2)
  - INJECTION SITE PAIN [None]
  - INJECTION SITE HAEMATOMA [None]
